FAERS Safety Report 5721337-X (Version None)
Quarter: 2008Q2

REPORT INFORMATION
  Report Type: 
  Country: None (occurrence: None)
  Receive Date: 20080428
  Receipt Date: 20080428
  Transmission Date: 20081010
  Serious: No
  Sender: FDA-Public Use
  Company Number: None

PATIENT
  Sex: Female
  Weight: 73.0291 kg

DRUGS (2)
  1. ACTONEL [Suspect]
     Indication: OSTEOPENIA
     Dates: start: 20080401, end: 20080402
  2. ACTONEL [Suspect]
     Indication: OSTEOPOROSIS
     Dates: start: 20080401, end: 20080402

REACTIONS (2)
  - BONE PAIN [None]
  - MYALGIA [None]
